FAERS Safety Report 9704721 (Version 3)
Quarter: 2013Q4

REPORT INFORMATION
  Report Type: Report from Study
  Country: US (occurrence: US)
  Receive Date: 20131122
  Receipt Date: 20131209
  Transmission Date: 20140711
  Serious: Yes (Hospitalization, Other)
  Sender: FDA-Public Use
  Company Number: US-ROCHE-1306000

PATIENT
  Sex: Female

DRUGS (6)
  1. LUCENTIS [Suspect]
     Indication: DIABETIC RETINOPATHY
     Dosage: LEFT EYE
     Route: 050
     Dates: start: 20131105
  2. LUCENTIS [Suspect]
     Indication: DIABETIC RETINAL OEDEMA
  3. LISINOPRIL [Concomitant]
     Indication: BLOOD PRESSURE
  4. LEVEMIR [Concomitant]
     Dosage: AT NIGHT
     Route: 065
  5. METFORMIN [Concomitant]
  6. GLIBENCLAMIDE [Concomitant]

REACTIONS (6)
  - Eye operation [Unknown]
  - Blindness [Recovering/Resolving]
  - Vitreous floaters [Not Recovered/Not Resolved]
  - Vision blurred [Recovering/Resolving]
  - Eye disorder [Unknown]
  - Vitreous haemorrhage [Unknown]
